FAERS Safety Report 23616702 (Version 5)
Quarter: 2024Q2

REPORT INFORMATION
  Report Type: Spontaneous
  Country: US (occurrence: None)
  Receive Date: 20240311
  Receipt Date: 20240430
  Transmission Date: 20240715
  Serious: No
  Sender: FDA-Public Use
  Company Number: 2024A057396

PATIENT
  Age: 22774 Day
  Sex: Female

DRUGS (1)
  1. AIRSUPRA [Suspect]
     Active Substance: ALBUTEROL SULFATE\BUDESONIDE
     Indication: Asthma
     Dosage: INHALER 2 TIMES TUESDAY AND 3 TIMES WEDNESDAY AND 1 TIME90.0UG UNKNOWN
     Route: 055
     Dates: start: 20240305, end: 20240306

REACTIONS (9)
  - Lung disorder [Unknown]
  - Sleep disorder [Unknown]
  - Chest pain [Not Recovered/Not Resolved]
  - Headache [Not Recovered/Not Resolved]
  - Overdose [Unknown]
  - Device use issue [Unknown]
  - Off label use [Unknown]
  - Intentional product misuse [Unknown]
  - Device malfunction [Unknown]

NARRATIVE: CASE EVENT DATE: 20240306
